FAERS Safety Report 5960838-6 (Version None)
Quarter: 2008Q4

REPORT INFORMATION
  Report Type: 
  Country: None (occurrence: None)
  Receive Date: 20081112
  Receipt Date: 20080507
  Transmission Date: 20090506
  Serious: Yes (Other)
  Sender: FDA-Public Use
  Company Number: 2008S1000178

PATIENT
  Age: 60 Year
  Sex: Male

DRUGS (2)
  1. CUBICIN [Suspect]
     Indication: ABSCESS
  2. VANCOMYCIN [Concomitant]

REACTIONS (4)
  - ANTIMICROBIAL SUSCEPTIBILITY TEST RESISTANT [None]
  - CONDITION AGGRAVATED [None]
  - OSTEOMYELITIS [None]
  - STAPHYLOCOCCAL INFECTION [None]
